FAERS Safety Report 14982450 (Version 1)
Quarter: 2018Q2

REPORT INFORMATION
  Report Type: Spontaneous
  Country: US (occurrence: US)
  Receive Date: 20180607
  Receipt Date: 20180607
  Transmission Date: 20180711
  Serious: No
  Sender: FDA-Public Use
  Company Number: US-PFIZER INC-2018227389

PATIENT
  Age: 66 Year
  Sex: Female
  Weight: 78 kg

DRUGS (1)
  1. IBRANCE [Suspect]
     Active Substance: PALBOCICLIB
     Indication: BREAST CANCER METASTATIC
     Dosage: 125 MG, CYCLIC, [DAYS 1-21 Q28 DAYS]
     Route: 048
     Dates: start: 20180509

REACTIONS (3)
  - Headache [Unknown]
  - Diarrhoea [Unknown]
  - Fatigue [Unknown]
